FAERS Safety Report 25441682 (Version 2)
Quarter: 2025Q2

REPORT INFORMATION
  Report Type: Spontaneous
  Country: CA (occurrence: CA)
  Receive Date: 20250616
  Receipt Date: 20250630
  Transmission Date: 20250717
  Serious: Yes (Death, Hospitalization)
  Sender: MYLAN
  Company Number: CA-MYLANLABS-2025M1021837

PATIENT
  Sex: Female

DRUGS (17)
  1. REVATIO [Suspect]
     Active Substance: SILDENAFIL CITRATE
     Indication: Pulmonary arterial hypertension
     Dosage: 20 MILLIGRAM, TID (3 TIMES DAY)
     Dates: start: 20190329
  2. UPTRAVI [Concomitant]
     Active Substance: SELEXIPAG
  3. AMBRISENTAN [Concomitant]
     Active Substance: AMBRISENTAN
  4. SEVELAMER HYDROCHLORIDE [Concomitant]
     Active Substance: SEVELAMER HYDROCHLORIDE
  5. WARFARIN [Concomitant]
     Active Substance: WARFARIN
  6. PANTOPRAZOLE [Concomitant]
     Active Substance: PANTOPRAZOLE
  7. DILTIAZEM HYDROCHLORIDE [Concomitant]
     Active Substance: DILTIAZEM HYDROCHLORIDE
  8. HYDROXYCHLOROQUINE [Concomitant]
     Active Substance: HYDROXYCHLOROQUINE
  9. CARBAMAZEPINE [Concomitant]
     Active Substance: CARBAMAZEPINE
  10. Replavite [Concomitant]
  11. ATORVASTATIN [Concomitant]
     Active Substance: ATORVASTATIN
  12. METOPROLOL TARTRATE [Concomitant]
     Active Substance: METOPROLOL TARTRATE
  13. FUROSEMIDE [Concomitant]
     Active Substance: FUROSEMIDE
  14. DOCUSATE [Concomitant]
     Active Substance: DOCUSATE
  15. FISH OIL [Concomitant]
     Active Substance: FISH OIL
  16. VITAMIN D [Concomitant]
     Active Substance: VITAMIN D NOS
  17. VITAMIN A AND D [Concomitant]
     Active Substance: LANOLIN\PETROLATUM

REACTIONS (8)
  - Death [Fatal]
  - Hospitalisation [Unknown]
  - Abdominal discomfort [Unknown]
  - Dyspnoea [Unknown]
  - Fatigue [Unknown]
  - Insomnia [Unknown]
  - Muscular weakness [Unknown]
  - Diarrhoea [Unknown]
